FAERS Safety Report 7781085-1 (Version None)
Quarter: 2011Q3

REPORT INFORMATION
  Report Type: 
  Country: None (occurrence: None)
  Receive Date: 20110927
  Receipt Date: 20110922
  Transmission Date: 20111222
  Serious: Yes (Death, Hospitalization)
  Sender: FDA-Public Use
  Company Number: PHHY2011CR84116

PATIENT
  Age: 88 Year
  Sex: Female

DRUGS (2)
  1. DIOVAN HCT [Suspect]
     Indication: HYPERTENSION
     Dosage: 1 DF, PER DAY
  2. ANTIHYPERTENSIVE DRUGS [Concomitant]

REACTIONS (3)
  - DEATH [None]
  - HIP FRACTURE [None]
  - FALL [None]
